FAERS Safety Report 4297310-8 (Version None)
Quarter: 2004Q1

REPORT INFORMATION
  Report Type: 
  Country: None (occurrence: None)
  Receive Date: 20040212
  Receipt Date: 20030501
  Transmission Date: 20041129
  Serious: Yes (Hospitalization)
  Sender: FDA-Public Use
  Company Number: A03200300945

PATIENT
  Age: 47 Year
  Sex: Male
  Weight: 113.3993 kg

DRUGS (6)
  1. AMBIEN [Suspect]
     Indication: BASEDOW'S DISEASE
     Dosage: 100 MG HS - ORAL
     Route: 048
     Dates: start: 19990101, end: 20030301
  2. AMBIEN [Suspect]
     Indication: INSOMNIA
     Dosage: 100 MG HS - ORAL
     Route: 048
     Dates: start: 19990101, end: 20030301
  3. BUSPIRONE HCL [Concomitant]
  4. TOPIRMATE [Concomitant]
  5. CLONAZEPAM [Concomitant]
  6. PROPYLTHIOURACIL [Concomitant]

REACTIONS (4)
  - AMNESIA [None]
  - DRUG ABUSER [None]
  - HALLUCINATION [None]
  - MUSCLE CONTRACTIONS INVOLUNTARY [None]
